FAERS Safety Report 10047130 (Version 1)
Quarter: 2014Q1

REPORT INFORMATION
  Report Type: Spontaneous
  Country: US (occurrence: US)
  Receive Date: 20140331
  Receipt Date: 20140331
  Transmission Date: 20141002
  Serious: No
  Sender: FDA-Public Use
  Company Number: US-009507513-1403USA009561

PATIENT
  Age: 69 Year
  Sex: Male

DRUGS (1)
  1. NASONEX [Suspect]
     Indication: HYPERSENSITIVITY
     Dosage: TWO SPRAYS PER NOSTRILL ONCE DAILY
     Route: 045

REACTIONS (3)
  - Sneezing [Not Recovered/Not Resolved]
  - Drug dose omission [Unknown]
  - Drug administration error [Unknown]
